FAERS Safety Report 4530905-2 (Version None)
Quarter: 2004Q4

REPORT INFORMATION
  Report Type: 
  Country: None (occurrence: None)
  Receive Date: 20041215
  Receipt Date: 20041207
  Transmission Date: 20050328
  Serious: Yes (Hospitalization)
  Sender: FDA-Public Use
  Company Number: 2003IM001113

PATIENT
  Age: 61 Year
  Sex: Male

DRUGS (1)
  1. ADVAFERON (A643_INTERFERON ALFACON-1) [Suspect]
     Indication: HEPATITIS C
     Dosage: 12 MU; QOD; SUBCUTANEOUS
     Route: 058
     Dates: start: 20030728, end: 20031010

REACTIONS (7)
  - ABNORMAL BEHAVIOUR [None]
  - DELIRIUM [None]
  - HALLUCINATION [None]
  - PAIN [None]
  - SCREAMING [None]
  - SPEECH DISORDER [None]
  - SUICIDAL IDEATION [None]
